FAERS Safety Report 20666818 (Version 2)
Quarter: 2024Q4

REPORT INFORMATION
  Report Type: Spontaneous
  Country: US (occurrence: US)
  Receive Date: 20220403
  Receipt Date: 20241011
  Transmission Date: 20250114
  Serious: No
  Sender: BRISTOL MYERS SQUIBB
  Company Number: US-BRISTOL-MYERS SQUIBB COMPANY-2022-013273

PATIENT
  Age: 26 Year
  Sex: Male

DRUGS (1)
  1. ORENCIA [Suspect]
     Active Substance: ABATACEPT
     Indication: Rheumatoid arthritis
     Dosage: 125MG QWK
     Route: 058
     Dates: start: 202202

REACTIONS (1)
  - Drug ineffective [Unknown]
